FAERS Safety Report 4811359-5 (Version None)
Quarter: 2005Q4

REPORT INFORMATION
  Report Type: 
  Country: None (occurrence: None)
  Receive Date: 20051025
  Receipt Date: 20051025
  Transmission Date: 20060501
  Serious: Yes (Other)
  Sender: FDA-Public Use
  Company Number: None

PATIENT
  Age: 65 Year
  Sex: Male
  Weight: 100 kg

DRUGS (2)
  1. SPIRONOLACTONE [Suspect]
     Indication: CORONARY ARTERY DISEASE
     Dosage: 25 MG PO DAILY
     Route: 048
     Dates: start: 20040401, end: 20050614
  2. SPIRONOLACTONE [Suspect]
     Indication: RENAL FAILURE CHRONIC
     Dosage: 25 MG PO DAILY
     Route: 048
     Dates: start: 20040401, end: 20050614

REACTIONS (1)
  - BLOOD POTASSIUM INCREASED [None]
